APPROVED DRUG PRODUCT: CLOBETASOL PROPIONATE
Active Ingredient: CLOBETASOL PROPIONATE
Strength: 0.05%
Dosage Form/Route: LOTION;TOPICAL
Application: A200302 | Product #001 | TE Code: AB
Applicant: SUN PHARMA CANADA INC
Approved: Jul 2, 2012 | RLD: No | RS: No | Type: RX